FAERS Safety Report 15666987 (Version 1)
Quarter: 2018Q4

REPORT INFORMATION
  Report Type: Spontaneous
  Country: US (occurrence: US)
  Receive Date: 20181128
  Receipt Date: 20181128
  Transmission Date: 20190205
  Serious: No
  Sender: FDA-Public Use
  Company Number: US-ROCHE-2169771

PATIENT
  Sex: Female
  Weight: 69.92 kg

DRUGS (5)
  1. OCREVUS [Suspect]
     Active Substance: OCRELIZUMAB
     Indication: MULTIPLE SCLEROSIS
     Dosage: 1ST 1/2 DOSE ?ONGOING: YES
     Route: 042
     Dates: start: 20180315
  2. LYRICA [Concomitant]
     Active Substance: PREGABALIN
     Dosage: ONGOING: YES
     Route: 048
  3. VITAMIN D3 [Concomitant]
     Active Substance: CHOLECALCIFEROL
     Dosage: ONGOING: YES
     Route: 048
  4. OCREVUS [Suspect]
     Active Substance: OCRELIZUMAB
     Dosage: 2ND 1/2 DOSE
     Route: 042
     Dates: start: 20180329
  5. PROZAC [Concomitant]
     Active Substance: FLUOXETINE HYDROCHLORIDE
     Dosage: ONGOING: YES
     Route: 048

REACTIONS (2)
  - Pain in extremity [Recovered/Resolved]
  - Drug ineffective [Unknown]
